FAERS Safety Report 23992254 (Version 2)
Quarter: 2024Q3

REPORT INFORMATION
  Report Type: Spontaneous
  Country: US (occurrence: US)
  Receive Date: 20240620
  Receipt Date: 20240808
  Transmission Date: 20241017
  Serious: No
  Sender: SANOFI AVENTIS
  Company Number: US-SA-SAC20240617000262

PATIENT
  Sex: Female

DRUGS (21)
  1. DUPIXENT [Suspect]
     Active Substance: DUPILUMAB
     Indication: Dermatitis atopic
     Dosage: 300 MG, QOW
     Route: 058
  2. ALBUTEROL SULFATE [Concomitant]
     Active Substance: ALBUTEROL SULFATE
  3. ALBUTEROL SULFATE [Concomitant]
     Active Substance: ALBUTEROL SULFATE
  4. ALPRAZOLAM [Concomitant]
     Active Substance: ALPRAZOLAM
     Route: 048
  5. ALPRAZOLAM [Concomitant]
     Active Substance: ALPRAZOLAM
  6. CLOBETASOL [Concomitant]
     Active Substance: CLOBETASOL
  7. CLOBETASOL [Concomitant]
     Active Substance: CLOBETASOL
  8. KENALOG [Concomitant]
     Active Substance: TRIAMCINOLONE ACETONIDE
  9. KENALOG [Concomitant]
     Active Substance: TRIAMCINOLONE ACETONIDE
  10. MELOXICAM [Concomitant]
     Active Substance: MELOXICAM
     Route: 048
  11. MELOXICAM [Concomitant]
     Active Substance: MELOXICAM
  12. PANTOPRAZOLE [Concomitant]
     Active Substance: PANTOPRAZOLE
     Route: 048
  13. PANTOPRAZOLE [Concomitant]
     Active Substance: PANTOPRAZOLE
  14. PREDNISONE [Concomitant]
     Active Substance: PREDNISONE
     Route: 048
  15. PREDNISONE [Concomitant]
     Active Substance: PREDNISONE
  16. ZYRTEC [Concomitant]
     Active Substance: CETIRIZINE HYDROCHLORIDE
  17. ZYRTEC [Concomitant]
     Active Substance: CETIRIZINE HYDROCHLORIDE
  18. HYDROCHLOROTHIAZIDE [Concomitant]
     Active Substance: HYDROCHLOROTHIAZIDE
  19. HYDROCODONE BITARTRATE AND ACETAMINOPHEN [Concomitant]
     Active Substance: ACETAMINOPHEN\HYDROCODONE BITARTRATE
  20. HYDROXYZINE HYDROCHLORIDE [Concomitant]
     Active Substance: HYDROXYZINE HYDROCHLORIDE
  21. HYDROCORT [HYDROCORTISONE] [Concomitant]

REACTIONS (2)
  - Sleep disorder due to a general medical condition [Recovering/Resolving]
  - Drug ineffective [Unknown]
